FAERS Safety Report 16726958 (Version 5)
Quarter: 2019Q3

REPORT INFORMATION
  Report Type: Report from Study
  Country: None (occurrence: AU)
  Receive Date: 20190821
  Receipt Date: 20190930
  Transmission Date: 20191005
  Serious: Yes (Death)
  Sender: FDA-Public Use
  Company Number: AU-ABBVIE-19K-008-2896127-00

PATIENT
  Sex: Male

DRUGS (1)
  1. DUODOPA [Suspect]
     Active Substance: CARBIDOPA\LEVODOPA
     Indication: PARKINSON^S DISEASE
     Dosage: 100ML GEL CASSETTE 2 HOUR?STRENGTH:- 20 MG/ML 5 MG/ML/12 HOUR-2.5 ML/HR AT 6AM/ PM DAILY
     Route: 050
     Dates: start: 20190731, end: 20190828

REACTIONS (5)
  - Delirium [Fatal]
  - Plasma cell myeloma refractory [Fatal]
  - Parkinson^s disease [Fatal]
  - Encephalopathy [Fatal]
  - Malaise [Fatal]
